FAERS Safety Report 20743794 (Version 1)
Quarter: 2022Q2

REPORT INFORMATION
  Report Type: Spontaneous
  Country: TN (occurrence: TN)
  Receive Date: 20220425
  Receipt Date: 20220425
  Transmission Date: 20220721
  Serious: Yes (Other)
  Sender: FDA-Public Use
  Company Number: TN-SANOFI US-2022SA129871

PATIENT

DRUGS (3)
  1. TRIAMCINOLONE ACETONIDE [Suspect]
     Active Substance: TRIAMCINOLONE ACETONIDE
     Dosage: 4 MG, INJECTION
     Route: 031
  2. POVIDONE-IODINE [Concomitant]
     Active Substance: POVIDONE-IODINE
     Indication: Infection prophylaxis
     Dosage: UNK
     Route: 061
  3. BENOXINATE [Concomitant]
     Active Substance: BENOXINATE
     Indication: Local anaesthesia
     Dosage: UNK

REACTIONS (8)
  - Non-infectious endophthalmitis [Recovered/Resolved]
  - Visual acuity reduced [Recovered/Resolved]
  - Vision blurred [Recovered/Resolved]
  - Vitreous disorder [Recovered/Resolved]
  - Ocular discomfort [Recovered/Resolved]
  - Eye pain [Recovered/Resolved]
  - Conjunctival hyperaemia [Recovered/Resolved]
  - Vitreous haze [Recovered/Resolved]
